FAERS Safety Report 8362132 (Version 4)
Quarter: 2015Q1

REPORT INFORMATION
  Report Type: Report from Study
  Country: US (occurrence: US)
  Receive Date: 20120130
  Receipt Date: 20150306
  Transmission Date: 20150721
  Serious: Yes (Death)
  Sender: FDA-Public Use
  Company Number: US-ROCHE-1033949

PATIENT
  Sex: Male
  Weight: 87.17 kg

DRUGS (18)
  1. GEMZAR [Suspect]
     Active Substance: GEMCITABINE HYDROCHLORIDE
     Indication: LUNG NEOPLASM MALIGNANT
     Route: 042
     Dates: start: 20070221
  2. CARBOPLATIN. [Concomitant]
     Active Substance: CARBOPLATIN
  3. TAXOTERE [Concomitant]
     Active Substance: DOCETAXEL
  4. MEGACE [Concomitant]
     Active Substance: MEGESTROL ACETATE
     Route: 048
  5. SOLU-MEDROL [Concomitant]
     Active Substance: METHYLPREDNISOLONE SODIUM SUCCINATE
     Route: 065
  6. VITAMIN B12 [Concomitant]
     Active Substance: CYANOCOBALAMIN
     Route: 030
  7. BENADRYL [Concomitant]
     Active Substance: DIPHENHYDRAMINE HYDROCHLORIDE
     Route: 042
  8. DEPO-MEDROL [Concomitant]
     Active Substance: METHYLPREDNISOLONE ACETATE
     Route: 065
  9. AVASTIN [Suspect]
     Active Substance: BEVACIZUMAB
     Dosage: DILUTED IN NORMAL SALINE (NS) AND GIVEN VIA IVPB
     Route: 042
     Dates: start: 20070612
  10. ALIMTA [Concomitant]
     Active Substance: PEMETREXED DISODIUM
     Indication: LUNG NEOPLASM MALIGNANT
     Route: 042
     Dates: start: 20070612
  11. PEPCID [Concomitant]
     Active Substance: FAMOTIDINE
     Route: 065
  12. NYSTATIN. [Concomitant]
     Active Substance: NYSTATIN
  13. AVASTIN [Suspect]
     Active Substance: BEVACIZUMAB
     Indication: LUNG NEOPLASM MALIGNANT
     Route: 042
     Dates: start: 20070221
  14. KYTRIL [Concomitant]
     Active Substance: GRANISETRON HYDROCHLORIDE
     Route: 042
  15. DECADRON [Concomitant]
     Active Substance: DEXAMETHASONE
     Route: 042
  16. TAGAMET INTRAVENOUS [Concomitant]
     Route: 042
  17. FOLATE [Concomitant]
     Active Substance: FOLATE SODIUM
     Route: 048
  18. DECADRON [Concomitant]
     Active Substance: DEXAMETHASONE
     Route: 065

REACTIONS (14)
  - Fatigue [Unknown]
  - Death [Fatal]
  - Pain [Unknown]
  - Disease progression [Unknown]
  - Drug effect variable [Unknown]
  - Dysphagia [Unknown]
  - Tooth abscess [Recovered/Resolved]
  - Discomfort [Unknown]
  - Asthenia [Unknown]
  - Malaise [Unknown]
  - Decreased appetite [Unknown]
  - Weight decreased [Unknown]
  - Rash [Recovered/Resolved]
  - Candida infection [Unknown]
